FAERS Safety Report 8175394-4 (Version None)
Quarter: 2012Q1

REPORT INFORMATION
  Report Type: 
  Country: None (occurrence: None)
  Receive Date: 20120229
  Receipt Date: 20120220
  Transmission Date: 20120608
  Serious: Yes (Congenital Anomaly)
  Sender: FDA-Public Use
  Company Number: US-FRI-1000028153

PATIENT
  Sex: Male

DRUGS (8)
  1. PRILOSEC [Concomitant]
     Route: 064
  2. PREVACID [Concomitant]
     Route: 064
     Dates: start: 20060126
  3. ROLAIDS [Concomitant]
     Route: 064
  4. CALCIUM CARBONATE [Concomitant]
     Route: 064
  5. LEXAPRO [Suspect]
     Route: 064
     Dates: end: 20060324
  6. PEPCID [Concomitant]
     Route: 064
     Dates: start: 20051230, end: 20060126
  7. PRENATE ELITE [Concomitant]
     Route: 064
     Dates: end: 20060324
  8. ACETAMINOPHEN [Concomitant]
     Route: 064

REACTIONS (5)
  - ARNOLD-CHIARI MALFORMATION [None]
  - HYDROCEPHALUS [None]
  - MICROCEPHALY [None]
  - DILATATION VENTRICULAR [None]
  - SPINA BIFIDA [None]
